FAERS Safety Report 15575773 (Version 1)
Quarter: 2018Q4

REPORT INFORMATION
  Report Type: Spontaneous
  Country: US (occurrence: US)
  Receive Date: 20181029
  Receipt Date: 20181029
  Transmission Date: 20190205
  Serious: No
  Sender: FDA-Public Use
  Company Number: None

PATIENT
  Age: 47 Year
  Sex: Female

DRUGS (1)
  1. NEVIRAPINE TAB 200MG CAMBER PHARMACEUTICALS [Suspect]
     Active Substance: NEVIRAPINE
     Route: 048
     Dates: start: 2005

REACTIONS (1)
  - Alopecia [None]

NARRATIVE: CASE EVENT DATE: 20181026
